FAERS Safety Report 5796861-4 (Version None)
Quarter: 2008Q2

REPORT INFORMATION
  Report Type: 
  Country: None (occurrence: None)
  Receive Date: 20080627
  Receipt Date: 20080623
  Transmission Date: 20081010
  Serious: Yes (Death)
  Sender: FDA-Public Use
  Company Number: FABR-1000276

PATIENT

DRUGS (2)
  1. FABRAZYME [Suspect]
     Indication: FABRY'S DISEASE
  2. REPLAGAL (AGALSIDASE ALFA) [Suspect]
     Indication: FABRY'S DISEASE

REACTIONS (1)
  - CARDIAC DISORDER [None]
